FAERS Safety Report 15417492 (Version 8)
Quarter: 2019Q2

REPORT INFORMATION
  Report Type: Spontaneous
  Country: US (occurrence: US)
  Receive Date: 20180924
  Receipt Date: 20190422
  Transmission Date: 20190711
  Serious: No
  Sender: FDA-Public Use
  Company Number: US-BRISTOL-MYERS SQUIBB COMPANY-BMS-2018-088614

PATIENT
  Sex: Female

DRUGS (2)
  1. ORENCIA [Suspect]
     Active Substance: ABATACEPT
     Indication: RHEUMATOID ARTHRITIS
     Dosage: 125 MILLIGRAM, QWK
     Route: 058
     Dates: start: 20180831
  2. ORENCIA [Suspect]
     Active Substance: ABATACEPT
     Indication: OSTEOARTHRITIS
     Route: 065

REACTIONS (7)
  - Influenza [Unknown]
  - Muscle spasms [Unknown]
  - Nasopharyngitis [Unknown]
  - Dizziness [Unknown]
  - Sinusitis [Recovering/Resolving]
  - Drug ineffective [Unknown]
  - Abdominal discomfort [Unknown]
